FAERS Safety Report 15922094 (Version 2)
Quarter: 2019Q1

REPORT INFORMATION
  Report Type: Spontaneous
  Country: US (occurrence: US)
  Receive Date: 20190205
  Receipt Date: 20190219
  Transmission Date: 20190417
  Serious: No
  Sender: FDA-Public Use
  Company Number: US-ALLERGAN-1815242US

PATIENT
  Age: 63 Year
  Sex: Female

DRUGS (1)
  1. BOTOX [Suspect]
     Active Substance: ONABOTULINUMTOXINA
     Indication: SPASMODIC DYSPHONIA
     Dosage: UNK, SINGLE 1-2 UNITS
     Route: 030
     Dates: start: 20180222, end: 20180222

REACTIONS (3)
  - Product storage error [Unknown]
  - Drug ineffective [Unknown]
  - Product preparation error [Unknown]
